FAERS Safety Report 6723468-4 (Version None)
Quarter: 2010Q2

REPORT INFORMATION
  Report Type: 
  Country: None (occurrence: None)
  Receive Date: 20100513
  Receipt Date: 20100504
  Transmission Date: 20101027
  Serious: Yes (Hospitalization)
  Sender: FDA-Public Use
  Company Number: JP-BRISTOL-MYERS SQUIBB COMPANY-15086549

PATIENT
  Age: 71 Year
  Sex: Male

DRUGS (12)
  1. ABILIFY [Suspect]
     Indication: SCHIZOPHRENIA
     Dosage: 6MG: 01-19OCT09(19D) 12MG: 20-30OCT09(11D)
     Route: 048
     Dates: start: 20091001, end: 20091030
  2. BIPERIDEN HYDROCHLORIDE TAB [Suspect]
     Dosage: TAKING FROM BEFORE 2005
     Route: 048
  3. LULLAN [Concomitant]
     Dosage: TABS
     Dates: end: 20091030
  4. CONTOMIN [Concomitant]
     Dosage: TABS
     Dates: end: 20091030
  5. ESTAZOLAM [Concomitant]
  6. GASMOTIN [Concomitant]
  7. PANTOSIN [Concomitant]
  8. GASCON [Concomitant]
  9. SENNOSIDE [Concomitant]
     Dosage: TABS
  10. LACTOMIN [Concomitant]
  11. THEO-DUR [Concomitant]
     Dates: end: 20091029
  12. GLYCERIN [Concomitant]
     Dosage: ENEMA
     Dates: start: 20091028, end: 20091028

REACTIONS (1)
  - SUBILEUS [None]
